FAERS Safety Report 19504180 (Version 2)
Quarter: 2021Q4

REPORT INFORMATION
  Report Type: Spontaneous
  Country: US (occurrence: US)
  Receive Date: 20210707
  Receipt Date: 20211109
  Transmission Date: 20220303
  Serious: Yes (Other)
  Sender: FDA-Public Use
  Company Number: US-GILEAD-2021-0539484

PATIENT
  Age: 64 Year
  Sex: Female
  Weight: 58.967 kg

DRUGS (7)
  1. TRUVADA [Suspect]
     Active Substance: EMTRICITABINE\TENOFOVIR DISOPROXIL FUMARATE
     Indication: Prophylaxis against HIV infection
     Dosage: UNK
     Route: 048
     Dates: start: 201508, end: 201710
  2. INTELENCE [Concomitant]
     Active Substance: ETRAVIRINE
  3. ALEVE [Concomitant]
     Active Substance: NAPROXEN SODIUM
  4. BETAXOLOL [Concomitant]
     Active Substance: BETAXOLOL
  5. IBUPROFEN [Concomitant]
     Active Substance: IBUPROFEN
  6. METOPROLOL [Concomitant]
     Active Substance: METOPROLOL
  7. PROPRANOLOL [Concomitant]
     Active Substance: PROPRANOLOL HYDROCHLORIDE

REACTIONS (10)
  - Fanconi syndrome acquired [Not Recovered/Not Resolved]
  - Pain [Not Recovered/Not Resolved]
  - Emotional distress [Not Recovered/Not Resolved]
  - Anxiety [Not Recovered/Not Resolved]
  - Anhedonia [Not Recovered/Not Resolved]
  - Vomiting [Unknown]
  - Loss of personal independence in daily activities [Unknown]
  - Gait disturbance [Unknown]
  - Fatigue [Unknown]
  - Asthenia [Unknown]

NARRATIVE: CASE EVENT DATE: 20170301
